FAERS Safety Report 4545540-X (Version None)
Quarter: 2005Q1

REPORT INFORMATION
  Report Type: 
  Country: None (occurrence: None)
  Receive Date: 20050105
  Receipt Date: 20041229
  Transmission Date: 20050727
  Serious: Yes (Life-Threatening, Hospitalization, Disabling, Other)
  Sender: FDA-Public Use
  Company Number: US-MERCK-0412USA03257

PATIENT
  Age: 55 Year
  Sex: Female

DRUGS (13)
  1. VIOXX [Suspect]
     Indication: ARTHRITIS
     Route: 048
     Dates: start: 20030101, end: 20040930
  2. VIOXX [Suspect]
     Indication: FIBROMYALGIA
     Route: 048
     Dates: start: 20030101, end: 20040930
  3. METFORMIN HYDROCHLORIDE [Concomitant]
     Indication: WEIGHT
     Route: 065
  4. TRAMADOL HYDROCHLORIDE [Concomitant]
     Route: 065
  5. PIROXICAM [Concomitant]
     Route: 065
  6. METOPROLOL SUCCINATE [Concomitant]
     Route: 065
  7. ISOSORBIDE MONONITRATE [Concomitant]
     Route: 065
  8. SERTRALINE HYDROCHLORIDE [Concomitant]
     Route: 065
  9. TRAZODONE HYDROCHLORIDE [Concomitant]
     Route: 065
  10. LISINOPRIL [Concomitant]
     Route: 065
  11. ZOCOR [Concomitant]
     Route: 048
  12. MORPHINE [Concomitant]
     Route: 065
  13. OMEPRAZOLE [Concomitant]
     Route: 065

REACTIONS (4)
  - BLOOD CHOLESTEROL INCREASED [None]
  - CARDIAC DISORDER [None]
  - HYPERTENSION [None]
  - MYOCARDIAL INFARCTION [None]
